FAERS Safety Report 11703471 (Version 1)
Quarter: 2015Q4

REPORT INFORMATION
  Report Type: Spontaneous
  Country: US (occurrence: US)
  Receive Date: 20151105
  Receipt Date: 20151105
  Transmission Date: 20160304
  Serious: No
  Sender: FDA-Public Use
  Company Number: US-ANACOR-2015ANA00138

PATIENT
  Age: 88 Year
  Sex: Male
  Weight: 61.22 kg

DRUGS (3)
  1. KERYDIN [Suspect]
     Active Substance: TAVABOROLE
     Dosage: UNK UNK, EVERY 48 HOURS
     Route: 061
     Dates: start: 201509
  2. KERYDIN [Suspect]
     Active Substance: TAVABOROLE
     Indication: ONYCHOMYCOSIS
     Dosage: UNK UNK, 1X/DAY
     Route: 061
     Dates: start: 201509, end: 201509
  3. UNSPECIFIED VITAMIN(S) [Concomitant]

REACTIONS (3)
  - Drug administered at inappropriate site [Not Recovered/Not Resolved]
  - Nail disorder [Recovered/Resolved]
  - Off label use [Not Recovered/Not Resolved]

NARRATIVE: CASE EVENT DATE: 201509
